FAERS Safety Report 9630226 (Version 1)
Quarter: 2013Q4

REPORT INFORMATION
  Report Type: Spontaneous
  Country: SE (occurrence: SE)
  Receive Date: 20131017
  Receipt Date: 20131017
  Transmission Date: 20140711
  Serious: Yes (Other)
  Sender: FDA-Public Use
  Company Number: SE-ALLERGAN-1316220US

PATIENT
  Age: 38 Year
  Sex: Female

DRUGS (7)
  1. BOTOX [Suspect]
     Indication: MIGRAINE
     Dosage: 5 UNITS, SINGLE
     Dates: start: 20130503, end: 20130503
  2. BOTOX [Suspect]
     Dosage: 5.0 UNITS, SINGLE
     Dates: start: 20130503, end: 20130503
  3. BOTOX [Suspect]
     Dosage: 5.0 UNITS, SINGLE
     Dates: start: 20130523, end: 20130523
  4. BOTOX [Suspect]
     Dosage: 10 UNITS, SINGLE
     Dates: start: 20130523, end: 20130523
  5. OXIS TURBUHALER [Concomitant]
  6. LOMUDAL [Concomitant]
  7. CLARITYN [Concomitant]

REACTIONS (4)
  - Urticaria [Recovered/Resolved]
  - Eyelid ptosis [Recovered/Resolved]
  - Alopecia [Not Recovered/Not Resolved]
  - Myalgia [Recovered/Resolved]
